FAERS Safety Report 5233188-3 (Version None)
Quarter: 2007Q1

REPORT INFORMATION
  Report Type: 
  Country: None (occurrence: None)
  Receive Date: 20070207
  Receipt Date: 20070130
  Transmission Date: 20070707
  Serious: Yes (Other)
  Sender: FDA-Public Use
  Company Number: US-PFIZER INC-2007009076

PATIENT
  Age: 27 Year
  Sex: Female
  Weight: 145.2 kg

DRUGS (5)
  1. GEODON [Suspect]
     Indication: BIPOLAR DISORDER
     Dosage: TEXT:UNKNOWN
     Dates: start: 20061101, end: 20061101
  2. LAMICTAL [Interacting]
     Indication: BIPOLAR DISORDER
     Route: 048
     Dates: start: 20051001, end: 20061101
  3. ARIPIPRAZOLE [Interacting]
     Indication: BIPOLAR DISORDER
     Dosage: TEXT:UNKNOWN
     Dates: start: 20061001, end: 20061101
  4. ALL OTHER THERAPEUTIC PRODUCTS [Concomitant]
  5. ORAL CONTRACEPTIVE NOS [Concomitant]

REACTIONS (5)
  - CHOLESTASIS [None]
  - DRUG INTERACTION [None]
  - HEPATITIS TOXIC [None]
  - PRURITUS [None]
  - RASH MACULO-PAPULAR [None]
